FAERS Safety Report 4917530-6 (Version None)
Quarter: 2006Q1

REPORT INFORMATION
  Report Type: 
  Country: None (occurrence: None)
  Receive Date: 20060221
  Receipt Date: 20060210
  Transmission Date: 20060701
  Serious: Yes (Other)
  Sender: FDA-Public Use
  Company Number: PHBS2006IN02413

PATIENT

DRUGS (1)
  1. VOVERAN [Suspect]

REACTIONS (2)
  - FAT NECROSIS [None]
  - NECROSIS [None]
